FAERS Safety Report 8618033-8 (Version None)
Quarter: 2012Q3

REPORT INFORMATION
  Report Type: 
  Country: None (occurrence: None)
  Receive Date: 20120824
  Receipt Date: 20120206
  Transmission Date: 20120928
  Serious: No
  Sender: FDA-Public Use
  Company Number: US-ASTRAZENECA-2012SE07883

PATIENT
  Sex: Female

DRUGS (1)
  1. SYMBICORT [Suspect]
     Indication: EMPHYSEMA
     Dosage: 2 PUFFS, BID
     Route: 055

REACTIONS (3)
  - ORAL FUNGAL INFECTION [None]
  - APHAGIA [None]
  - DRUG DOSE OMISSION [None]
